FAERS Safety Report 4845165-2 (Version None)
Quarter: 2005Q4

REPORT INFORMATION
  Report Type: 
  Country: None (occurrence: None)
  Receive Date: 20051205
  Receipt Date: 20031112
  Transmission Date: 20060501
  Serious: Yes (Death, Hospitalization)
  Sender: FDA-Public Use
  Company Number: AU-ROCHE-351908

PATIENT
  Age: 54 Year
  Sex: Male
  Weight: 54 kg

DRUGS (7)
  1. GANCICLOVIR [Suspect]
     Indication: DRUG USE FOR UNKNOWN INDICATION
     Route: 065
     Dates: start: 20000315
  2. METFORMIN HYDROCHLORIDE [Suspect]
     Indication: DIABETES MELLITUS
     Route: 048
     Dates: start: 20011207, end: 20011217
  3. SULFAMETHOXAZOLE + TRIMETHOPRIM [Suspect]
     Indication: DRUG USE FOR UNKNOWN INDICATION
     Route: 065
  4. DIDANOSINE [Suspect]
     Indication: DRUG USE FOR UNKNOWN INDICATION
     Route: 065
     Dates: end: 20011217
  5. STAVUDINE [Suspect]
     Indication: DRUG USE FOR UNKNOWN INDICATION
     Route: 065
     Dates: end: 20011217
  6. TENOFOVIR DISOPROXIL FUMARATE [Suspect]
     Indication: DRUG USE FOR UNKNOWN INDICATION
     Route: 065
     Dates: start: 20010915, end: 20011217
  7. CLARITHROMYCIN [Suspect]
     Indication: DRUG USE FOR UNKNOWN INDICATION
     Route: 065

REACTIONS (16)
  - ABDOMINAL PAIN [None]
  - BLOOD CREATININE INCREASED [None]
  - CARDIAC FAILURE [None]
  - ELECTROCARDIOGRAM ABNORMAL [None]
  - ELECTROMECHANICAL DISSOCIATION [None]
  - HEPATOMEGALY [None]
  - HYPERKALAEMIA [None]
  - JAUNDICE [None]
  - LACTIC ACIDOSIS [None]
  - LETHARGY [None]
  - LIPOATROPHY [None]
  - LIVER FUNCTION TEST ABNORMAL [None]
  - LIVER TENDERNESS [None]
  - NAUSEA [None]
  - VOMITING [None]
  - WEIGHT DECREASED [None]
